FAERS Safety Report 13930994 (Version 2)
Quarter: 2019Q4

REPORT INFORMATION
  Report Type: Spontaneous
  Country: DE (occurrence: DE)
  Receive Date: 20170902
  Receipt Date: 20191015
  Transmission Date: 20200122
  Serious: Yes (Disabling, Congenital Anomaly, Other)
  Sender: FDA-Public Use
  Company Number: DE-TORRENT-00007011

PATIENT
  Age: 9 Month
  Sex: Female
  Weight: 2 kg

DRUGS (3)
  1. OSPOLOT [Suspect]
     Active Substance: SULTHIAME
     Indication: EPILEPSY
     Dosage: 300 [MG/D]
     Route: 064
     Dates: start: 20160109, end: 20161003
  2. LEVETIRACETAM. [Suspect]
     Active Substance: LEVETIRACETAM
     Indication: EPILEPSY
     Dosage: 2250 [MG/D]/ INCREASED DOSE?FROM GESTATIONAL WEEK 4 5/7.
     Route: 064
     Dates: start: 20160109, end: 20161003
  3. BELLA HEXAL [Concomitant]
     Active Substance: CYPROTERONE ACETATE\ETHINYL ESTRADIOL
     Indication: CONTRACEPTION
     Dosage: 0.035 [MG/D] / 2?[MG/D]
     Route: 064
     Dates: start: 20160109, end: 20160204

REACTIONS (3)
  - Small for dates baby [Unknown]
  - Congenital cyst [Not Recovered/Not Resolved]
  - Foetal exposure during pregnancy [Unknown]

NARRATIVE: CASE EVENT DATE: 2016
